FAERS Safety Report 14977164 (Version 1)
Quarter: 2018Q2

REPORT INFORMATION
  Report Type: Spontaneous
  Country: DE (occurrence: DE)
  Receive Date: 20180606
  Receipt Date: 20180606
  Transmission Date: 20180711
  Serious: Yes (Hospitalization)
  Sender: FDA-Public Use
  Company Number: DE-TEVA-2018-DE-902392

PATIENT
  Age: 88 Year
  Sex: Female

DRUGS (3)
  1. METOPROLOL. [Suspect]
     Active Substance: METOPROLOL
     Dosage: 1-0-0-0
     Route: 065
  2. NITRENDIPINE [Suspect]
     Active Substance: NITRENDIPINE
     Dosage: 0.5-0-0-0
     Route: 065
  3. RAMIPRIL. [Suspect]
     Active Substance: RAMIPRIL
     Dosage: 1-0-1-0
     Route: 065

REACTIONS (2)
  - Fall [Unknown]
  - Syncope [Unknown]
